FAERS Safety Report 20073314 (Version 2)
Quarter: 2021Q4

REPORT INFORMATION
  Report Type: Spontaneous
  Country: PL (occurrence: PL)
  Receive Date: 20211116
  Receipt Date: 20211201
  Transmission Date: 20220304
  Serious: Yes (Disabling, Other)
  Sender: FDA-Public Use
  Company Number: PL-NOVARTISPH-NVSC2021PL257456

PATIENT
  Age: 68 Year
  Sex: Male

DRUGS (1)
  1. BEOVU [Suspect]
     Active Substance: BROLUCIZUMAB-DBLL
     Indication: Neovascular age-related macular degeneration
     Dosage: UNK, (PREVIOUSLY UNTREATED EYE)
     Route: 031
     Dates: start: 20210426, end: 20210426

REACTIONS (3)
  - Retinal pigment epithelial tear [Unknown]
  - Retinal oedema [Unknown]
  - Macular rupture [Not Recovered/Not Resolved]

NARRATIVE: CASE EVENT DATE: 20210526
